FAERS Safety Report 5735337-7 (Version None)
Quarter: 2008Q2

REPORT INFORMATION
  Report Type: 
  Country: None (occurrence: None)
  Receive Date: 20080508
  Receipt Date: 20080508
  Transmission Date: 20081010
  Serious: No
  Sender: FDA-Public Use
  Company Number: None

PATIENT
  Age: 37 Year
  Sex: Female
  Weight: 77.1115 kg

DRUGS (3)
  1. CREST PRO-HEALTH NIGHT (0.07% CETYLPRIDINIUM) [Suspect]
     Indication: DENTAL PLAQUE
     Dosage: 20ML TWICE A DAY DENTAL
     Route: 004
     Dates: start: 20080405, end: 20080506
  2. CREST PRO-HEALTH NIGHT (0.07% CETYLPRIDINIUM) [Suspect]
     Indication: GINGIVITIS
     Dosage: 20ML TWICE A DAY DENTAL
     Route: 004
     Dates: start: 20080405, end: 20080506
  3. CREST PRO-HEALTH NIGHT (0.07% CETYLPRIDINIUM) [Suspect]
     Indication: PROPHYLAXIS
     Dosage: 20ML TWICE A DAY DENTAL
     Route: 004
     Dates: start: 20080405, end: 20080506

REACTIONS (1)
  - DYSGEUSIA [None]
